FAERS Safety Report 9540063 (Version 1)
Quarter: 2013Q3

REPORT INFORMATION
  Report Type: Spontaneous
  Country: FR (occurrence: FR)
  Receive Date: 20130920
  Receipt Date: 20130920
  Transmission Date: 20140515
  Serious: Yes (Hospitalization)
  Sender: FDA-Public Use
  Company Number: FR-TEVA-432655ISR

PATIENT
  Age: 73 Year
  Sex: Male

DRUGS (6)
  1. TRISENOX [Suspect]
     Indication: ACUTE MYELOID LEUKAEMIA
     Dosage: .15 MG/KG DAILY;
     Route: 042
     Dates: start: 20130717, end: 20130729
  2. ATACAND [Concomitant]
     Dosage: LONG-TERM TREATMENT
     Route: 065
  3. INEXIUM [Concomitant]
     Dosage: LONG-TERM TREATMENT
     Route: 065
  4. CACIT D3 [Concomitant]
     Dosage: LONG-TERM TREATMENT
     Route: 065
  5. ACYPROST [Concomitant]
     Route: 065
  6. VESANOID [Concomitant]
     Indication: ACUTE MYELOID LEUKAEMIA
     Route: 065

REACTIONS (2)
  - Ileus [Recovering/Resolving]
  - Pyrexia [Unknown]
